FAERS Safety Report 24199989 (Version 2)
Quarter: 2024Q3

REPORT INFORMATION
  Report Type: Spontaneous
  Country: US (occurrence: US)
  Receive Date: 20240812
  Receipt Date: 20240814
  Transmission Date: 20241016
  Serious: Yes (Other)
  Sender: PFIZER
  Company Number: US-PFIZER INC-202400233902

PATIENT
  Age: 70 Year
  Sex: Male
  Weight: 120.2 kg

DRUGS (2)
  1. EUCRISA [Suspect]
     Active Substance: CRISABOROLE
     Indication: Eczema
     Dosage: 2 %
  2. EUCRISA [Suspect]
     Active Substance: CRISABOROLE
     Dosage: ONE APPLICATION TOPICALLY, TWICE A DAY
     Route: 061
     Dates: start: 202405, end: 202407

REACTIONS (1)
  - Prostate cancer [Unknown]
